FAERS Safety Report 24115961 (Version 2)
Quarter: 2024Q3

REPORT INFORMATION
  Report Type: Report from Study
  Country: CN (occurrence: CN)
  Receive Date: 20240722
  Receipt Date: 20240730
  Transmission Date: 20241017
  Serious: Yes (Death, Other)
  Sender: GILEAD
  Company Number: CN-GILEAD-2024-0680982

PATIENT
  Age: 52 Year
  Sex: Male

DRUGS (2)
  1. SACITUZUMAB GOVITECAN-HZIY [Suspect]
     Active Substance: SACITUZUMAB GOVITECAN-HZIY
     Indication: Hepatic cancer metastatic
     Dosage: 2 VIAL AT A TIME
     Route: 041
     Dates: start: 20240620
  2. IRINOTECAN [Suspect]
     Active Substance: IRINOTECAN
     Indication: Product used for unknown indication
     Dosage: UNK
     Route: 065

REACTIONS (6)
  - Hepatic failure [Fatal]
  - Ascites [Unknown]
  - Renal failure [Unknown]
  - Condition aggravated [Unknown]
  - Jaundice [Unknown]
  - Off label use [Unknown]

NARRATIVE: CASE EVENT DATE: 20240620
